FAERS Safety Report 10224796 (Version 2)
Quarter: 2014Q2

REPORT INFORMATION
  Report Type: Spontaneous
  Country: US (occurrence: US)
  Receive Date: 20140609
  Receipt Date: 20140609
  Transmission Date: 20141212
  Serious: Yes (Hospitalization)
  Sender: FDA-Public Use
  Company Number: US-GLAXOSMITHKLINE-A0744025A

PATIENT
  Age: 62 Year
  Sex: Male
  Weight: 127.3 kg

DRUGS (1)
  1. AVANDIA [Suspect]
     Indication: TYPE 2 DIABETES MELLITUS
     Dosage: 4MG PER DAY
     Route: 048
     Dates: start: 200207, end: 200505

REACTIONS (7)
  - Cardiac failure congestive [Not Recovered/Not Resolved]
  - Weight increased [Unknown]
  - Atrial fibrillation [Unknown]
  - Cor pulmonale [Unknown]
  - Respiratory arrest [Unknown]
  - Cardiac arrest [Unknown]
  - Transient ischaemic attack [Unknown]
